FAERS Safety Report 7369227-3 (Version None)
Quarter: 2011Q1

REPORT INFORMATION
  Report Type: 
  Country: None (occurrence: None)
  Receive Date: 20110321
  Receipt Date: 20110321
  Transmission Date: 20110831
  Serious: Yes (Death, Hospitalization)
  Sender: FDA-Public Use
  Company Number: None

PATIENT
  Age: 67 Year
  Sex: Female

DRUGS (11)
  1. DEXAMETHASONE [Concomitant]
  2. VICODIN [Concomitant]
  3. REVLIMID [Suspect]
     Indication: NON-HODGKIN'S LYMPHOMA
     Dosage: 20MG DAILY X21D/28D ORALLY
     Route: 048
     Dates: start: 20100128, end: 20100227
  4. NEUPOGEN [Concomitant]
  5. SIMVASTATIN [Concomitant]
  6. ATENOLOL [Concomitant]
  7. ACYCLOVIR [Concomitant]
  8. RITUXAN [Concomitant]
  9. ONDANSETRON [Concomitant]
  10. OMEPRAZOLE [Concomitant]
  11. ASPIRIN [Concomitant]

REACTIONS (2)
  - PNEUMONIA [None]
  - PNEUMONITIS [None]
